FAERS Safety Report 7720664-4 (Version None)
Quarter: 2011Q3

REPORT INFORMATION
  Report Type: 
  Country: None (occurrence: None)
  Receive Date: 20110831
  Receipt Date: 20110823
  Transmission Date: 20111222
  Serious: Yes (Other)
  Sender: FDA-Public Use
  Company Number: PHEH2011US02268

PATIENT
  Sex: Female
  Weight: 73.016 kg

DRUGS (2)
  1. EXJADE [Suspect]
     Indication: BLOOD TEST ABNORMAL
     Dosage: 500 MG, BID
     Route: 048
     Dates: start: 20100616, end: 20110520
  2. CHEMOTHERAPEUTICS [Concomitant]
     Dosage: UNK UKN, UNK

REACTIONS (1)
  - INFECTION [None]
